FAERS Safety Report 9227522 (Version 3)
Quarter: 2013Q2

REPORT INFORMATION
  Report Type: Report from Study
  Country: DK (occurrence: DK)
  Receive Date: 20130412
  Receipt Date: 20130619
  Transmission Date: 20140414
  Serious: Yes (Other)
  Sender: FDA-Public Use
  Company Number: DK-ASTELLAS-2013US003675

PATIENT
  Age: 75 Year
  Sex: Male
  Weight: 85 kg

DRUGS (2)
  1. BLINDED ENZALUTAMIDE [Suspect]
     Indication: PROSTATE CANCER METASTATIC
     Dosage: DAILY
     Route: 048
     Dates: start: 20130122
  2. IBUPROFEN [Concomitant]
     Indication: BACK PAIN
     Dosage: 200 DF, PRN
     Route: 048
     Dates: start: 1990

REACTIONS (1)
  - Alanine aminotransferase increased [Recovered/Resolved]
